FAERS Safety Report 16637187 (Version 2)
Quarter: 2019Q3

REPORT INFORMATION
  Report Type: Report from Study
  Country: FR (occurrence: FR)
  Receive Date: 20190726
  Receipt Date: 20190808
  Transmission Date: 20191004
  Serious: Yes (Hospitalization)
  Sender: FDA-Public Use
  Company Number: FR-VIIV HEALTHCARE LIMITED-FR2019127071

PATIENT
  Age: 33 Year
  Sex: Male

DRUGS (5)
  1. CABOTEGRAVIR [Suspect]
     Active Substance: CABOTEGRAVIR
     Indication: HIV INFECTION
     Dosage: 30 MG, CYC
     Route: 048
     Dates: start: 20140718, end: 20141203
  2. CABOTEGRAVIR [Suspect]
     Active Substance: CABOTEGRAVIR
     Dosage: 3 ML, CYC
     Route: 030
     Dates: start: 20150108
  3. RILPIVIRINE [Suspect]
     Active Substance: RILPIVIRINE
     Indication: HIV INFECTION
     Dosage: 25 MG, CYC
     Route: 048
     Dates: start: 20141106, end: 20141203
  4. CABOTEGRAVIR [Suspect]
     Active Substance: CABOTEGRAVIR
     Indication: HIV INFECTION
     Dosage: 4 ML, SINGLE (LOADING DOSE)
     Route: 030
     Dates: start: 20141204, end: 20141204
  5. TMC278 LA [Suspect]
     Active Substance: RILPIVIRINE
     Indication: HIV INFECTION
     Dosage: 3 ML, CYC
     Route: 030
     Dates: start: 20141204

REACTIONS (1)
  - Delusion [Not Recovered/Not Resolved]

NARRATIVE: CASE EVENT DATE: 20190620
